FAERS Safety Report 5341317-6 (Version None)
Quarter: 2007Q2

REPORT INFORMATION
  Report Type: 
  Country: None (occurrence: None)
  Receive Date: 20070523
  Receipt Date: 20070510
  Transmission Date: 20071010
  Serious: Yes (Hospitalization)
  Sender: FDA-Public Use
  Company Number: 200711926

PATIENT

DRUGS (1)
  1. VIVAGLOBIN [Suspect]
     Indication: PRIMARY IMMUNODEFICIENCY SYNDROME

REACTIONS (3)
  - HEADACHE [None]
  - PNEUMONIA BACTERIAL [None]
  - PYREXIA [None]
